FAERS Safety Report 5373171-0 (Version None)
Quarter: 2007Q2

REPORT INFORMATION
  Report Type: 
  Country: None (occurrence: None)
  Receive Date: 20070626
  Receipt Date: 20070614
  Transmission Date: 20071010
  Serious: Yes (Hospitalization)
  Sender: FDA-Public Use
  Company Number: 2007BI009495

PATIENT
  Age: 55 Year
  Sex: Male

DRUGS (16)
  1. NATALIZUMAB [Suspect]
     Indication: MULTIPLE SCLEROSIS
     Dosage: 300 MG;QM;IV
     Route: 042
     Dates: start: 20070202
  2. FLOMAX [Concomitant]
  3. CARDURA [Concomitant]
  4. TYLENOL [Concomitant]
  5. ASPIRIN [Concomitant]
  6. BACLOFEN [Concomitant]
  7. COLACE [Concomitant]
  8. FLUOXETINE [Concomitant]
  9. M.V.I. [Concomitant]
  10. PROTONIX [Concomitant]
  11. PREPARATION H [Concomitant]
  12. MIRALAX [Concomitant]
  13. K-DUR 10 [Concomitant]
  14. ZANAFLEX [Concomitant]
  15. XENADERM [Concomitant]
  16. DANTRIUM [Concomitant]

REACTIONS (3)
  - ASTHENIA [None]
  - DYSSTASIA [None]
  - URINARY TRACT INFECTION [None]
